FAERS Safety Report 6634976-9 (Version None)
Quarter: 2010Q1

REPORT INFORMATION
  Report Type: 
  Country: None (occurrence: None)
  Receive Date: 20100312
  Receipt Date: 20100312
  Transmission Date: 20100710
  Serious: Yes (Other)
  Sender: FDA-Public Use
  Company Number: None

PATIENT
  Age: 39 Year
  Sex: Female

DRUGS (2)
  1. ADDERALL 10 [Suspect]
     Dosage: 10 MG 1 X DAILY PO
     Route: 048
     Dates: start: 20070320
  2. ADDERALL 15 [Suspect]
     Indication: ATTENTION DEFICIT/HYPERACTIVITY DISORDER
     Dosage: 15 MG X R 1 X DAILY PO
     Route: 048
     Dates: start: 20070328

REACTIONS (1)
  - UNEVALUABLE EVENT [None]
